FAERS Safety Report 9937122 (Version 2)
Quarter: 2014Q1

REPORT INFORMATION
  Report Type: Spontaneous
  Country: US (occurrence: US)
  Receive Date: 20140301
  Receipt Date: 20140319
  Transmission Date: 20141002
  Serious: No
  Sender: FDA-Public Use
  Company Number: US-009507513-1402USA012815

PATIENT
  Sex: Female

DRUGS (1)
  1. NASONEX [Suspect]
     Indication: RHINITIS ALLERGIC
     Dosage: UNK
     Dates: start: 20140221, end: 20140222

REACTIONS (3)
  - Drug dose omission [Unknown]
  - Product quality issue [Unknown]
  - No adverse event [Unknown]
